FAERS Safety Report 7508794-3 (Version None)
Quarter: 2011Q2

REPORT INFORMATION
  Report Type: 
  Country: None (occurrence: None)
  Receive Date: 20110527
  Receipt Date: 20110227
  Transmission Date: 20111010
  Serious: No
  Sender: FDA-Public Use
  Company Number: A0916555A

PATIENT
  Sex: Female

DRUGS (1)
  1. VENTOLIN HFA [Suspect]
     Route: 055

REACTIONS (5)
  - HYPERSENSITIVITY [None]
  - SCAB [None]
  - LIP PRURITUS [None]
  - LIP BLISTER [None]
  - LIP SWELLING [None]
